FAERS Safety Report 9049337 (Version 3)
Quarter: 2013Q2

REPORT INFORMATION
  Report Type: Spontaneous
  Country: JP (occurrence: JP)
  Receive Date: 20130205
  Receipt Date: 20130403
  Transmission Date: 20140414
  Serious: Yes (Hospitalization)
  Sender: FDA-Public Use
  Company Number: JP-SHIRE-ALL1-2013-00587

PATIENT
  Age: 68 Year
  Sex: Male

DRUGS (7)
  1. FOSRENOL [Suspect]
     Indication: HYPERPHOSPHATAEMIA
     Dosage: 1500 MG, UNKNOWN (TOTAL DAILY DOSE 1500 MG)
     Route: 048
     Dates: start: 20110527, end: 20130125
  2. TAKEPRON [Concomitant]
     Indication: GASTROOESOPHAGEAL REFLUX DISEASE
     Dosage: 15 MG, UNKNOWN
     Route: 048
     Dates: start: 20081119
  3. AMLODIN [Concomitant]
     Indication: HYPERTENSION
     Dosage: 10 MG, UNKNOWN
     Route: 048
     Dates: start: 19991011
  4. BAYASPIRIN [Concomitant]
     Indication: ANGINA PECTORIS
     Dosage: 200 MG, UNKNOWN
     Route: 048
     Dates: start: 19981126
  5. MUCOSTA [Concomitant]
     Indication: GASTRITIS
     Dosage: 200 MG, UNKNOWN
     Route: 048
     Dates: start: 20070228
  6. OXAROL [Concomitant]
     Indication: HYPERPARATHYROIDISM
     Dosage: UNK, UNKNOWN
     Route: 042
     Dates: start: 20090202
  7. NESP [Concomitant]
     Indication: NEPHROGENIC ANAEMIA
     Dosage: UNK, UNKNOWN
     Route: 042
     Dates: start: 20101112

REACTIONS (1)
  - Pneumatosis intestinalis [Recovering/Resolving]
